FAERS Safety Report 24915423 (Version 2)
Quarter: 2025Q2

REPORT INFORMATION
  Report Type: Spontaneous
  Country: JP (occurrence: JP)
  Receive Date: 20250203
  Receipt Date: 20250405
  Transmission Date: 20250717
  Serious: Yes (Hospitalization)
  Sender: AMGEN
  Company Number: JP-AMGEN-JPNSP2025019200

PATIENT
  Age: 57 Year
  Sex: Male

DRUGS (2)
  1. EVENITY [Suspect]
     Active Substance: ROMOSOZUMAB-AQQG
     Indication: Product used for unknown indication
     Route: 058
     Dates: start: 20241018, end: 20241018
  2. EVENITY [Suspect]
     Active Substance: ROMOSOZUMAB-AQQG
     Route: 058
     Dates: start: 20250128

REACTIONS (1)
  - Hospitalisation [Unknown]

NARRATIVE: CASE EVENT DATE: 20240101
